FAERS Safety Report 8911053 (Version 1)
Quarter: 2012Q4

REPORT INFORMATION
  Report Type: 
  Country: US (occurrence: US)
  Receive Date: 20121115
  Receipt Date: 20121115
  Transmission Date: 20130627
  Serious: Yes (Hospitalization)
  Sender: FDA-Public Use
  Company Number: US-AMGEN-USASP2012037360

PATIENT
  Sex: Female

DRUGS (2)
  1. VECTIBIX [Suspect]
     Indication: COLORECTAL CANCER
     Dates: start: 201206
  2. IRINOTECAN [Concomitant]
     Indication: COLON CANCER
     Dosage: UNK
     Dates: start: 201206

REACTIONS (1)
  - Diarrhoea [Recovered/Resolved]
